FAERS Safety Report 18314682 (Version 2)
Quarter: 2021Q2

REPORT INFORMATION
  Report Type: Report from Study
  Country: US (occurrence: US)
  Receive Date: 20200925
  Receipt Date: 20210617
  Transmission Date: 20210717
  Serious: Yes (Other)
  Sender: FDA-Public Use
  Company Number: US-BAUSCH-BL-2020-027353

PATIENT
  Age: 61 Year
  Sex: Male
  Weight: 113.5 kg

DRUGS (4)
  1. SILIQ [Suspect]
     Active Substance: BRODALUMAB
     Indication: PSORIASIS
     Dosage: 210 MG/1.5 ML, 0,1 AND 2 WEEKS
     Route: 058
     Dates: start: 2018
  2. ADVIL [Concomitant]
     Active Substance: IBUPROFEN
     Indication: PRODUCT USED FOR UNKNOWN INDICATION
     Dosage: AS NEEDED
     Route: 048
  3. SILIQ [Suspect]
     Active Substance: BRODALUMAB
     Dosage: EVERY OTHER WEEK
     Route: 058
     Dates: end: 202008
  4. TYLENOL [Concomitant]
     Active Substance: ACETAMINOPHEN
     Indication: PRODUCT USED FOR UNKNOWN INDICATION
     Dosage: AS NEEDED

REACTIONS (8)
  - Hip arthroplasty [Unknown]
  - Scab [Unknown]
  - Intentional product use issue [Unknown]
  - Skin haemorrhage [Unknown]
  - Psoriasis [Unknown]
  - Cyst [Unknown]
  - Acrochordon [Unknown]
  - Papule [Unknown]

NARRATIVE: CASE EVENT DATE: 202008
